FAERS Safety Report 4840948-7 (Version None)
Quarter: 2005Q4

REPORT INFORMATION
  Report Type: 
  Country: None (occurrence: None)
  Receive Date: 20051130
  Receipt Date: 20050802
  Transmission Date: 20060501
  Serious: No
  Sender: FDA-Public Use
  Company Number: US-BRISTOL-MYERS SQUIBB COMPANY-13060975

PATIENT
  Age: 5 Decade
  Sex: Female

DRUGS (5)
  1. ABILIFY [Suspect]
  2. BENZTROPINE MESYLATE [Concomitant]
  3. INDERAL [Concomitant]
  4. STELAZINE [Concomitant]
  5. LITHIUM [Concomitant]

REACTIONS (3)
  - DIFFICULTY IN WALKING [None]
  - MUSCLE SPASMS [None]
  - SENSORY LOSS [None]
